FAERS Safety Report 8491503-1 (Version None)
Quarter: 2012Q3

REPORT INFORMATION
  Report Type: 
  Country: None (occurrence: None)
  Receive Date: 20120706
  Receipt Date: 20120627
  Transmission Date: 20120928
  Serious: Yes (Hospitalization)
  Sender: FDA-Public Use
  Company Number: JP-SANOFI-AVENTIS-2012SA041028

PATIENT
  Age: 54 Year
  Sex: Female
  Weight: 51 kg

DRUGS (9)
  1. CATLEP [Concomitant]
     Indication: PAIN PROPHYLAXIS
     Dosage: 40 SHEETS/WEEK
     Route: 061
  2. PIPERACILLIN SODIUM [Concomitant]
     Indication: INFECTION PROPHYLAXIS
     Route: 041
     Dates: start: 20110726, end: 20110727
  3. LOXONIN [Concomitant]
     Indication: PAIN PROPHYLAXIS
     Route: 048
     Dates: start: 20110727, end: 20110817
  4. ENOXAPARIN SODIUM [Suspect]
     Route: 058
     Dates: start: 20110803, end: 20110803
  5. ANAESTHETICS, GENERAL [Concomitant]
     Dosage: SYSTEMIC ANESTHESIA COMBINED WITH EPIDURAL ANESTHESIA
  6. ENOXAPARIN SODIUM [Suspect]
     Route: 058
     Dates: start: 20110730, end: 20110802
  7. ENOXAPARIN SODIUM [Suspect]
     Route: 058
     Dates: start: 20110729, end: 20110729
  8. ENOXAPARIN SODIUM [Suspect]
     Route: 058
     Dates: start: 20110728, end: 20110728
  9. ENOXAPARIN SODIUM [Suspect]
     Indication: THROMBOSIS PROPHYLAXIS
     Route: 058
     Dates: start: 20110727, end: 20110727

REACTIONS (9)
  - ASTHENIA [None]
  - HYPOAESTHESIA [None]
  - HEADACHE [None]
  - HYPERAESTHESIA [None]
  - MUSCLE RIGIDITY [None]
  - LOSS OF CONSCIOUSNESS [None]
  - SUBDURAL HAEMATOMA [None]
  - CONVULSION [None]
  - NAUSEA [None]
